FAERS Safety Report 12732238 (Version 1)
Quarter: 2016Q3

REPORT INFORMATION
  Report Type: Spontaneous
  Country: US (occurrence: US)
  Receive Date: 20160909
  Receipt Date: 20160909
  Transmission Date: 20161109
  Serious: Yes (Disabling)
  Sender: FDA-Public Use
  Company Number: None

PATIENT
  Age: 40 Year
  Sex: Female
  Weight: 72 kg

DRUGS (2)
  1. CELEXA [Concomitant]
     Active Substance: CITALOPRAM HYDROBROMIDE
  2. LARIAM [Suspect]
     Active Substance: MEFLOQUINE HYDROCHLORIDE
     Indication: MALARIA PROPHYLAXIS
     Dosage: OTHER STRENGTH:;OTHER DOSE:;OTHER FREQUENCY:ONCE PER WEEK X 6;OTHER ROUTE:
     Route: 048
     Dates: start: 19970401, end: 19970516

REACTIONS (11)
  - Hallucination [None]
  - Binocular eye movement disorder [None]
  - Aggression [None]
  - Aphasia [None]
  - Migraine [None]
  - Tinnitus [None]
  - Depression [None]
  - Anxiety [None]
  - Panic attack [None]
  - Hyperhidrosis [None]
  - Confusional state [None]

NARRATIVE: CASE EVENT DATE: 20160909
